FAERS Safety Report 7943101-3 (Version None)
Quarter: 2011Q4

REPORT INFORMATION
  Report Type: 
  Country: None (occurrence: None)
  Receive Date: 20111128
  Receipt Date: 20111115
  Transmission Date: 20120403
  Serious: Yes (Hospitalization)
  Sender: FDA-Public Use
  Company Number: PHEH2011US009487

PATIENT
  Sex: Female

DRUGS (1)
  1. EXJADE [Suspect]
     Indication: MYELODYSPLASTIC SYNDROME UNCLASSIFIABLE
     Dosage: 2000 MG, DAILY
     Route: 048
     Dates: start: 20090310

REACTIONS (3)
  - UROSEPSIS [None]
  - PYREXIA [None]
  - BLOOD CREATININE INCREASED [None]
